FAERS Safety Report 7497824-3 (Version None)
Quarter: 2011Q2

REPORT INFORMATION
  Report Type: 
  Country: None (occurrence: None)
  Receive Date: 20110524
  Receipt Date: 20110502
  Transmission Date: 20111010
  Serious: Yes (Hospitalization, Other)
  Sender: FDA-Public Use
  Company Number: US-BAYER-201032431NA

PATIENT
  Age: 48 Year
  Sex: Female
  Weight: 77.098 kg

DRUGS (9)
  1. YAZ [Suspect]
     Indication: PREMENSTRUAL SYNDROME
  2. METFORMIN [Concomitant]
     Indication: DIABETES MELLITUS
     Dosage: UNK
     Dates: start: 20090101
  3. DICYCOMIN [Concomitant]
     Indication: IRRITABLE BOWEL SYNDROME
     Dosage: UNK
     Dates: start: 20000101
  4. YAZ [Suspect]
     Indication: ORAL CONTRACEPTION
     Route: 048
     Dates: start: 20090601
  5. CYANOCOBALAMIN [Concomitant]
     Indication: VITAMIN B12 DECREASED
     Dosage: UNK
     Dates: start: 20000101
  6. ZETIA [Concomitant]
     Indication: BLOOD CHOLESTEROL INCREASED
     Dosage: UNK
     Dates: start: 20070101
  7. TRAMADOL HCL [Concomitant]
     Indication: PAIN
     Dosage: UNK
     Dates: start: 20010101
  8. LISINOPRIL [Concomitant]
     Indication: HYPERTENSION
     Dosage: UNK
     Dates: start: 20010101
  9. VALTREX [Concomitant]
     Indication: HERPES VIRUS INFECTION
     Dosage: UNK
     Dates: start: 20010101

REACTIONS (3)
  - PULMONARY EMBOLISM [None]
  - PAIN [None]
  - DEEP VEIN THROMBOSIS [None]
